FAERS Safety Report 9115141 (Version 1)
Quarter: 2013Q1

REPORT INFORMATION
  Report Type: Spontaneous
  Country: US (occurrence: None)
  Receive Date: 20130220
  Receipt Date: 20130220
  Transmission Date: 20140127
  Serious: Yes (Life-Threatening)
  Sender: FDA-Public Use
  Company Number: None

PATIENT
  Age: 68 Year
  Sex: Male
  Weight: 79.6 kg

DRUGS (1)
  1. MIDAZOLAM [Suspect]
     Indication: SURGERY
     Dates: start: 20120821, end: 20120821

REACTIONS (1)
  - Cardiac arrest [None]
